FAERS Safety Report 8480369-1 (Version None)
Quarter: 2012Q3

REPORT INFORMATION
  Report Type: 
  Country: None (occurrence: None)
  Receive Date: 20120702
  Receipt Date: 20120620
  Transmission Date: 20120928
  Serious: Yes (Life-Threatening, Hospitalization, Other)
  Sender: FDA-Public Use
  Company Number: ZA-BRISTOL-MYERS SQUIBB COMPANY-16492498

PATIENT
  Age: 44 Year
  Sex: Female
  Weight: 50 kg

DRUGS (6)
  1. EFAVIRENZ [Suspect]
     Indication: HIV INFECTION
     Dosage: AT BED TIME,LAST DOSE:25MAR2012. RESTARTED 7JUN12
     Route: 048
     Dates: start: 20120302
  2. ETHAMBUTOL HYDROCHLORIDE [Concomitant]
     Indication: TUBERCULOSIS
     Dosage: LAST DOSE;20APR12
     Route: 048
  3. ISONIAZID [Suspect]
     Indication: PROPHYLAXIS
     Dosage: LAST DOSE:26MAR2012, ADMINISTRATION:EVERY DAY RESTARTED 7JUN12
     Route: 048
     Dates: start: 20120302
  4. STREPTOMYCIN [Concomitant]
     Indication: TUBERCULOSIS
     Route: 030
  5. TRUVADA [Suspect]
     Indication: HIV INFECTION
     Dosage: 1DF=200/300MG, LAST DOSE:25MAR12. RESTARTED 7JUN12
     Route: 048
     Dates: start: 20120302
  6. RIFAMPICIN [Concomitant]
     Indication: TUBERCULOSIS
     Dosage: LAST DOSE;20APR12
     Route: 048

REACTIONS (2)
  - DEHYDRATION [None]
  - HEPATITIS [None]
